FAERS Safety Report 17632814 (Version 1)
Quarter: 2020Q2

REPORT INFORMATION
  Report Type: Spontaneous
  Country: US (occurrence: US)
  Receive Date: 20200406
  Receipt Date: 20200406
  Transmission Date: 20200713
  Serious: Yes (Hospitalization, Other)
  Sender: FDA-Public Use
  Company Number: NVSC2020US089662

PATIENT
  Age: 15 Year
  Sex: Male

DRUGS (5)
  1. METHOTREXATE. [Suspect]
     Active Substance: METHOTREXATE
     Indication: ACUTE LYMPHOCYTIC LEUKAEMIA
     Dosage: UNK
     Route: 037
  2. VINCRISTINE [Suspect]
     Active Substance: VINCRISTINE
     Indication: ACUTE LYMPHOCYTIC LEUKAEMIA
     Dosage: UNK
     Route: 065
  3. DAUNORUBICIN [Suspect]
     Active Substance: DAUNORUBICIN
     Indication: ACUTE LYMPHOCYTIC LEUKAEMIA
     Dosage: UNK
     Route: 065
  4. POLYETHYLENE GLYCOL [Suspect]
     Active Substance: POLYETHYLENE GLYCOLS
     Indication: ACUTE LYMPHOCYTIC LEUKAEMIA
     Dosage: UNK
     Route: 065
  5. ASPARAGINASE [Suspect]
     Active Substance: ASPARAGINASE
     Indication: ACUTE LYMPHOCYTIC LEUKAEMIA
     Dosage: UNK
     Route: 065

REACTIONS (21)
  - Hypotension [Recovered/Resolved]
  - Dizziness [Recovered/Resolved]
  - Fungal endocarditis [Recovered/Resolved]
  - Palpitations [Recovered/Resolved]
  - Shock [Recovered/Resolved]
  - Tachycardia [Recovered/Resolved]
  - Pyrexia [Recovered/Resolved]
  - Lid lag [Recovered/Resolved]
  - Retinitis [Recovered/Resolved]
  - Swelling [Recovered/Resolved]
  - Thyrotoxic crisis [Recovered/Resolved]
  - Hyperthyroidism [Recovered/Resolved]
  - Systemic candida [Recovered/Resolved]
  - Vascular device infection [Recovered/Resolved]
  - Reflexes abnormal [Recovered/Resolved]
  - Odynophagia [Recovered/Resolved]
  - Left ventricular failure [Recovered/Resolved]
  - Neck pain [Recovered/Resolved]
  - Neutropenia [Recovered/Resolved]
  - Tremor [Recovered/Resolved]
  - Infectious thyroiditis [Recovered/Resolved]
